FAERS Safety Report 5139314-9 (Version None)
Quarter: 2006Q4

REPORT INFORMATION
  Report Type: 
  Country: None (occurrence: None)
  Receive Date: 20061024
  Receipt Date: 20061011
  Transmission Date: 20070319
  Serious: Yes (Life-Threatening, Other)
  Sender: FDA-Public Use
  Company Number: MYVW-PR-0606S-0034

PATIENT
  Age: 50 Year
  Sex: Male

DRUGS (7)
  1. MYOVIEW [Suspect]
     Indication: HAEMOPTYSIS
     Dosage: , SINGLE DOSE, I.V.
     Route: 042
     Dates: start: 20051101, end: 20051101
  2. TECHNETIUM (TC99M) GENERATOR (SODIUM PERTECHNETATE TCC99M) [Concomitant]
  3. ANTIBIOTIC [Concomitant]
  4. ISONIAZID [Concomitant]
  5. WARFARIN SODIUM [Concomitant]
  6. ENOXAPARIN SODIUM (LOVENOX) [Concomitant]
  7. ACETAMINOPHEN/OXYCODONE (PERCOCET) [Concomitant]

REACTIONS (11)
  - DIARRHOEA [None]
  - DRUG HYPERSENSITIVITY [None]
  - FALL [None]
  - HAEMOPTYSIS [None]
  - HEPATIC TRAUMA [None]
  - INTESTINAL HAEMORRHAGE [None]
  - LACERATION [None]
  - MALAISE [None]
  - PNEUMONIA [None]
  - TUBERCULOSIS [None]
  - VOMITING [None]
